FAERS Safety Report 11750919 (Version 1)
Quarter: 2015Q4

REPORT INFORMATION
  Report Type: Spontaneous
  Country: BR (occurrence: BR)
  Receive Date: 20151118
  Receipt Date: 20151118
  Transmission Date: 20160304
  Serious: Yes (Other)
  Sender: FDA-Public Use
  Company Number: BR-ELI_LILLY_AND_COMPANY-BR201511002480

PATIENT
  Sex: Male
  Weight: 72 kg

DRUGS (2)
  1. HUMULIN N [Suspect]
     Active Substance: INSULIN HUMAN
     Dosage: 4 IU, EACH MORNING
     Route: 058
     Dates: start: 2013
  2. HUMULIN N [Suspect]
     Active Substance: INSULIN HUMAN
     Indication: DIABETES MELLITUS
     Dosage: 4 IU, EACH EVENING
     Route: 058
     Dates: start: 2013

REACTIONS (2)
  - Anaemia [Not Recovered/Not Resolved]
  - Myocardial infarction [Unknown]
